FAERS Safety Report 7968406-1 (Version None)
Quarter: 2011Q4

REPORT INFORMATION
  Report Type: 
  Country: None (occurrence: None)
  Receive Date: 20111209
  Receipt Date: 20111207
  Transmission Date: 20120403
  Serious: Yes (Other)
  Sender: FDA-Public Use
  Company Number: US-BAYER-2011-116914

PATIENT
  Age: 81 Year
  Sex: Male

DRUGS (1)
  1. NEXAVAR [Suspect]
     Indication: THYROID CANCER
     Dosage: 400 MG, BID
     Route: 048
     Dates: start: 20111126, end: 20111202

REACTIONS (5)
  - ARTHRALGIA [None]
  - INFLAMMATION [None]
  - ABASIA [None]
  - PAIN IN EXTREMITY [None]
  - URINARY TRACT INFECTION [None]
